FAERS Safety Report 7617128-5 (Version None)
Quarter: 2011Q3

REPORT INFORMATION
  Report Type: 
  Country: None (occurrence: None)
  Receive Date: 20110718
  Receipt Date: 20110712
  Transmission Date: 20111222
  Serious: Yes (Other)
  Sender: FDA-Public Use
  Company Number: US-B.I. PHARMACEUTICALS,INC./RIDGEFIELD-2011-BP-01955BP

PATIENT
  Sex: Female

DRUGS (2)
  1. SPIRIVA [Suspect]
     Indication: ASTHMA
     Dosage: 18 MCG
     Route: 055
     Dates: start: 20101214
  2. SPIRIVA [Suspect]

REACTIONS (5)
  - DRY MOUTH [None]
  - COUGH [None]
  - SYNCOPE [None]
  - OROPHARYNGEAL PAIN [None]
  - FALL [None]
